FAERS Safety Report 23789931 (Version 1)
Quarter: 2024Q2

REPORT INFORMATION
  Report Type: Spontaneous
  Country: US (occurrence: None)
  Receive Date: 20240424
  Receipt Date: 20240424
  Transmission Date: 20240716
  Serious: Yes (Hospitalization)
  Sender: FDA-Public Use
  Company Number: None

PATIENT
  Age: 76 Year
  Sex: Male

DRUGS (2)
  1. CARVEDILOL [Suspect]
     Active Substance: CARVEDILOL
     Indication: Hypertension
     Dosage: 6.25 MMG BID PO?
     Route: 048
     Dates: start: 20231206, end: 20240113
  2. METHOCARBAMOL [Suspect]
     Active Substance: METHOCARBAMOL

REACTIONS (6)
  - Abdominal pain [None]
  - Vomiting [None]
  - Pancreatitis [None]
  - Treatment noncompliance [None]
  - Bile duct stone [None]
  - Therapy cessation [None]

NARRATIVE: CASE EVENT DATE: 20240104
